FAERS Safety Report 18598315 (Version 3)
Quarter: 2021Q1

REPORT INFORMATION
  Report Type: Spontaneous
  Country: US (occurrence: US)
  Receive Date: 20201209
  Receipt Date: 20210105
  Transmission Date: 20210419
  Serious: No
  Sender: FDA-Public Use
  Company Number: US-009507513-2012USA003305

PATIENT
  Sex: Female

DRUGS (4)
  1. MENOPUR [Concomitant]
     Active Substance: FOLLITROPIN\LUTEINIZING HORMONE
  2. FOLLISTIM AQ [Suspect]
     Active Substance: FOLLITROPIN
     Indication: INFERTILITY FEMALE
     Dosage: STRENGTH: 900 IU/1.08 ML, DOSE: 150?450 UNITS, QD: 10?14D
     Route: 058
     Dates: start: 20201031
  3. ESTRADIOL. [Concomitant]
     Active Substance: ESTRADIOL
  4. GANIRELIX ACETATE INJECTION [Concomitant]
     Active Substance: GANIRELIX ACETATE

REACTIONS (4)
  - Dizziness [Unknown]
  - Asthenia [Unknown]
  - Injection site bruising [Unknown]
  - Nausea [Unknown]
